FAERS Safety Report 5544622-3 (Version None)
Quarter: 2007Q4

REPORT INFORMATION
  Report Type: 
  Country: None (occurrence: None)
  Receive Date: 20071210
  Receipt Date: 20070105
  Transmission Date: 20080405
  Serious: No
  Sender: FDA-Public Use
  Company Number: US-AMGEN-KDL205827

PATIENT
  Sex: Female

DRUGS (7)
  1. ENBREL [Suspect]
     Indication: RHEUMATOID ARTHRITIS
     Route: 058
     Dates: start: 20060627
  2. CITALOPRAM HYDROBROMIDE [Concomitant]
  3. METHOTREXATE [Concomitant]
  4. PERCOCET [Concomitant]
  5. PREDNISONE [Concomitant]
  6. TEMAZEPAM [Concomitant]
  7. QUETIAPINE FUMARATE [Concomitant]

REACTIONS (1)
  - THERAPEUTIC RESPONSE DECREASED [None]
